FAERS Safety Report 13815703 (Version 1)
Quarter: 2017Q3

REPORT INFORMATION
  Report Type: Spontaneous
  Country: US (occurrence: US)
  Receive Date: 20170731
  Receipt Date: 20170731
  Transmission Date: 20171127
  Serious: No
  Sender: FDA-Public Use
  Company Number: US-GLENMARK PHARMACEUTICALS-2016GMK024103

PATIENT

DRUGS (2)
  1. MUPIROCIN. [Suspect]
     Active Substance: MUPIROCIN
     Indication: OFF LABEL USE
  2. MUPIROCIN. [Suspect]
     Active Substance: MUPIROCIN
     Indication: SCAB
     Dosage: UNK
     Route: 061
     Dates: start: 20160822

REACTIONS (3)
  - Therapeutic response unexpected [Unknown]
  - Off label use [Unknown]
  - Incorrect route of drug administration [Unknown]
